FAERS Safety Report 10069427 (Version 2)
Quarter: 2014Q2

REPORT INFORMATION
  Report Type: Spontaneous
  Country: US (occurrence: US)
  Receive Date: 20140410
  Receipt Date: 20140418
  Transmission Date: 20141212
  Serious: Yes (Death, Other)
  Sender: FDA-Public Use
  Company Number: US-MERCK-1404USA003794

PATIENT
  Sex: Female

DRUGS (1)
  1. TEMODAR [Suspect]
     Indication: BRAIN NEOPLASM MALIGNANT
     Dosage: UNK, ONCE DAILY
     Route: 048
     Dates: start: 201402

REACTIONS (1)
  - Brain neoplasm malignant [Fatal]
